FAERS Safety Report 9500486 (Version 1)
Quarter: 2013Q3

REPORT INFORMATION
  Report Type: Spontaneous
  Country: US (occurrence: US)
  Receive Date: 20130905
  Receipt Date: 20130905
  Transmission Date: 20140515
  Serious: Yes (Other)
  Sender: FDA-Public Use
  Company Number: US-BAYER-2013-106542

PATIENT
  Age: 27 Year
  Sex: Female
  Weight: 51.25 kg

DRUGS (2)
  1. YASMIN [Suspect]
  2. ACCUTANE [Concomitant]
     Indication: ACNE
     Dosage: UNK
     Dates: start: 20080703

REACTIONS (1)
  - Deep vein thrombosis [Recovered/Resolved]
